FAERS Safety Report 23167291 (Version 1)
Quarter: 2023Q4

REPORT INFORMATION
  Report Type: Spontaneous
  Country: JP (occurrence: JP)
  Receive Date: 20231109
  Receipt Date: 20231109
  Transmission Date: 20240110
  Serious: Yes (Hospitalization)
  Sender: FDA-Public Use
  Company Number: JP-Eisai-EC-2023-152120

PATIENT
  Age: 71 Year
  Sex: Female

DRUGS (11)
  1. LENVIMA [Suspect]
     Active Substance: LENVATINIB
     Indication: Endometrial cancer
     Route: 048
     Dates: start: 202206, end: 202207
  2. LENVIMA [Suspect]
     Active Substance: LENVATINIB
     Route: 048
     Dates: start: 2022, end: 202209
  3. KEYTRUDA [Suspect]
     Active Substance: PEMBROLIZUMAB
     Indication: Endometrial cancer
     Route: 041
     Dates: start: 202206, end: 202207
  4. KEYTRUDA [Suspect]
     Active Substance: PEMBROLIZUMAB
     Route: 041
     Dates: start: 2022, end: 202209
  5. IRBESARTAN/AMLODIPINE BESILATE [Concomitant]
     Indication: Hypertension
     Dosage: IRBESARTAN:100MG/AMLODIPINE: 5MG (FREQUENCY UNKNOWN)
     Dates: end: 2022
  6. IRBESARTAN/AMLODIPINE BESILATE [Concomitant]
     Indication: Hypertension
     Dosage: DOSE INCREASED TO IRBESARTAN:100MG/AMLODIPINE: 10MG (FREQUENCY UNKNOWN)
     Dates: start: 2022
  7. HYDROCORTISONE [Concomitant]
     Active Substance: HYDROCORTISONE
     Indication: Adrenal insufficiency
     Dates: start: 2022
  8. HYDROCORTISONE [Concomitant]
     Active Substance: HYDROCORTISONE
     Indication: Hypophysitis
     Dates: start: 2022
  9. HYDROCORTISONE [Concomitant]
     Active Substance: HYDROCORTISONE
     Dates: start: 2022
  10. HYDROCORTISONE [Concomitant]
     Active Substance: HYDROCORTISONE
     Dates: start: 2022
  11. HYDROCORTISONE [Concomitant]
     Active Substance: HYDROCORTISONE

REACTIONS (1)
  - Intestinal obstruction [Unknown]

NARRATIVE: CASE EVENT DATE: 20221201
